FAERS Safety Report 23814840 (Version 1)
Quarter: 2024Q2

REPORT INFORMATION
  Report Type: Other
  Country: CN (occurrence: CN)
  Receive Date: 20240503
  Receipt Date: 20240503
  Transmission Date: 20240716
  Serious: Yes (Other)
  Sender: FDA-Public Use
  Company Number: CN-BRACCO-2024CN02509

PATIENT
  Age: 52 Year
  Sex: Male

DRUGS (1)
  1. IOPAMIDOL [Suspect]
     Active Substance: IOPAMIDOL
     Indication: Angiogram
     Dosage: 50 ML, SINGLE
     Route: 042

REACTIONS (2)
  - Extravasation [Recovering/Resolving]
  - Stroke in evolution [Recovering/Resolving]
